FAERS Safety Report 22614471 (Version 1)
Quarter: 2023Q2

REPORT INFORMATION
  Report Type: Spontaneous
  Country: KR (occurrence: KR)
  Receive Date: 20230619
  Receipt Date: 20230619
  Transmission Date: 20230721
  Serious: Yes (Hospitalization)
  Sender: FDA-Public Use
  Company Number: KR-TEVA-2023-KR-2895499

PATIENT
  Age: 76 Year
  Sex: Female
  Weight: 57 kg

DRUGS (10)
  1. BENDAMUSTINE [Suspect]
     Active Substance: BENDAMUSTINE
     Indication: Chronic lymphocytic leukaemia
     Dosage: 101.3 MILLIGRAM DAILY; CYCLICAL, LAST DOSE PRIOR TO THE AE: 09-MAR-2023
     Route: 042
     Dates: start: 20221109, end: 20221109
  2. BENDAMUSTINE [Suspect]
     Active Substance: BENDAMUSTINE
     Dosage: 135 MILLIGRAM DAILY;
     Route: 042
     Dates: start: 20221207
  3. RITUXIMAB [Suspect]
     Active Substance: RITUXIMAB
     Indication: Chronic lymphocytic leukaemia
     Dosage: 562.5 MILLIGRAM DAILY;
     Route: 042
     Dates: start: 20231109
  4. RITUXIMAB [Suspect]
     Active Substance: RITUXIMAB
     Dosage: 750 MILLIGRAM DAILY; LAST DOSE PRIOR TO THE AE: 08-MAR-2023
     Dates: start: 20221207
  5. HYDROCHLOROTHIAZIDE\VALSARTAN [Concomitant]
     Active Substance: HYDROCHLOROTHIAZIDE\VALSARTAN
     Indication: Product used for unknown indication
     Dates: start: 2015
  6. GEMIGLIPTIN\METFORMIN [Concomitant]
     Active Substance: GEMIGLIPTIN\METFORMIN
     Indication: Product used for unknown indication
  7. ATORVASTATIN [Concomitant]
     Active Substance: ATORVASTATIN
     Indication: Hypertension
     Route: 065
     Dates: start: 2015
  8. QUETIAPINE [Concomitant]
     Active Substance: QUETIAPINE
     Indication: Bipolar disorder
     Route: 065
     Dates: start: 2018
  9. DIASTASE\LIPASE\URSODIOL [Concomitant]
     Active Substance: DIASTASE\LIPASE\URSODIOL
     Indication: Product used for unknown indication
  10. IMIPRAMINE HYDROCHLORIDE [Concomitant]
     Active Substance: IMIPRAMINE HYDROCHLORIDE
     Indication: Product used for unknown indication
     Dates: start: 2018

REACTIONS (1)
  - Cytomegalovirus oesophagitis [Recovered/Resolved]

NARRATIVE: CASE EVENT DATE: 20230407
